FAERS Safety Report 12867189 (Version 2)
Quarter: 2018Q2

REPORT INFORMATION
  Report Type: Spontaneous
  Country: US (occurrence: US)
  Receive Date: 20161020
  Receipt Date: 20180628
  Transmission Date: 20180711
  Serious: No
  Sender: FDA-Public Use
  Company Number: US-JAZZ-2016-US-014800

PATIENT
  Sex: Female

DRUGS (32)
  1. TRAMADOL HCL [Concomitant]
     Active Substance: TRAMADOL HYDROCHLORIDE
  2. METHOCARBAMOL. [Concomitant]
     Active Substance: METHOCARBAMOL
  3. ALBUTEROL SULFATE. [Concomitant]
     Active Substance: ALBUTEROL SULFATE
  4. TRAZODONE [Concomitant]
     Active Substance: TRAZODONE HYDROCHLORIDE
  5. ZINC GLUCONATE [Concomitant]
     Active Substance: ZINC GLUCONATE
  6. XYREM [Suspect]
     Active Substance: SODIUM OXYBATE
     Dosage: 4.5 G, BID
     Route: 048
     Dates: start: 201209
  7. FOLIC ACID ALMUS [Concomitant]
     Active Substance: FOLIC ACID
  8. MAGNESIUM CITRATE. [Concomitant]
     Active Substance: MAGNESIUM CITRATE
  9. NATURE-THROID [Concomitant]
     Active Substance: THYROID, PORCINE
  10. MELATONIN [Concomitant]
     Active Substance: MELATONIN
  11. PROMETHAZINE [Concomitant]
     Active Substance: PROMETHAZINE\PROMETHAZINE HYDROCHLORIDE
  12. ZINC. [Concomitant]
     Active Substance: ZINC
  13. CALCIUM CITRATE WITH VITAMIN D3 [Concomitant]
  14. KLONOPIN [Concomitant]
     Active Substance: CLONAZEPAM
  15. XYREM [Suspect]
     Active Substance: SODIUM OXYBATE
     Dosage: 3 G, BID
     Route: 048
     Dates: start: 201204, end: 201209
  16. CHROMIUM PICOLINAT [Concomitant]
  17. MINIVELLE [Concomitant]
     Active Substance: ESTRADIOL
  18. CALCARB [Concomitant]
  19. VERAPAMIL [Concomitant]
     Active Substance: VERAPAMIL HYDROCHLORIDE
  20. XYREM [Suspect]
     Active Substance: SODIUM OXYBATE
     Indication: NARCOLEPSY
     Dosage: 2.25 G, BID
     Route: 048
     Dates: start: 201203, end: 201204
  21. VERAPAMIL HYDROCHLORIDE. [Concomitant]
     Active Substance: VERAPAMIL HYDROCHLORIDE
  22. DEMEROL [Concomitant]
     Active Substance: MEPERIDINE HYDROCHLORIDE
  23. MAGNESIUM [Concomitant]
     Active Substance: MAGNESIUM
  24. ASCORBIC ACID. [Concomitant]
     Active Substance: ASCORBIC ACID
  25. VITAMIN D3 [Concomitant]
     Active Substance: CHOLECALCIFEROL
  26. PHYTOMENADIONE [Concomitant]
     Active Substance: PHYTONADIONE
  27. WESTHROID [Concomitant]
     Active Substance: THYROGLOBULIN
  28. SELENIUM [Concomitant]
     Active Substance: SELENIUM
  29. SPIRONOLACTONE. [Concomitant]
     Active Substance: SPIRONOLACTONE
  30. XANAX [Concomitant]
     Active Substance: ALPRAZOLAM
  31. IODINE. [Concomitant]
     Active Substance: IODINE
  32. ATIVAN [Concomitant]
     Active Substance: LORAZEPAM

REACTIONS (1)
  - Influenza [Unknown]
